FAERS Safety Report 7056825-X (Version None)
Quarter: 2010Q4

REPORT INFORMATION
  Report Type: 
  Country: None (occurrence: None)
  Receive Date: 20101022
  Receipt Date: 20100415
  Transmission Date: 20110411
  Serious: No
  Sender: FDA-Public Use
  Company Number: A0855239A

PATIENT
  Sex: Female

DRUGS (2)
  1. DUAC [Suspect]
     Indication: ACNE
     Dosage: 1APP AS REQUIRED
     Route: 061
     Dates: start: 20090501, end: 20091201
  2. SOAP FREE CLEANSER [Concomitant]

REACTIONS (5)
  - CONDITION AGGRAVATED [None]
  - ERYTHEMA [None]
  - PRURITUS [None]
  - SKIN IRRITATION [None]
  - SWELLING [None]
